FAERS Safety Report 16271788 (Version 1)
Quarter: 2019Q2

REPORT INFORMATION
  Report Type: Spontaneous
  Country: FI (occurrence: FI)
  Receive Date: 20190506
  Receipt Date: 20190506
  Transmission Date: 20190711
  Serious: Yes (Death, Other)
  Sender: FDA-Public Use
  Company Number: FI-LUPIN PHARMACEUTICALS INC.-2019-02696

PATIENT
  Age: 57 Year
  Sex: Male

DRUGS (5)
  1. TEMAZEPAM. [Suspect]
     Active Substance: TEMAZEPAM
     Indication: SEDATION
     Dosage: UNK
     Route: 065
  2. DIAZEPAM. [Interacting]
     Active Substance: DIAZEPAM
     Indication: SEDATION
     Dosage: UNK
     Route: 065
  3. CAFFEINE. [Concomitant]
     Active Substance: CAFFEINE
     Indication: PRODUCT USED FOR UNKNOWN INDICATION
     Dosage: UNK
     Route: 065
  4. OXYCODONE [Concomitant]
     Active Substance: OXYCODONE
     Indication: PRODUCT USED FOR UNKNOWN INDICATION
     Dosage: UNK
     Route: 065
  5. CITALOPRAM [Concomitant]
     Active Substance: CITALOPRAM HYDROBROMIDE
     Indication: PRODUCT USED FOR UNKNOWN INDICATION
     Dosage: UNK
     Route: 065

REACTIONS (2)
  - Drug interaction [Unknown]
  - Completed suicide [Fatal]
